FAERS Safety Report 13624063 (Version 2)
Quarter: 2017Q3

REPORT INFORMATION
  Report Type: Spontaneous
  Country: US (occurrence: US)
  Receive Date: 20170607
  Receipt Date: 20170809
  Transmission Date: 20171127
  Serious: No
  Sender: FDA-Public Use
  Company Number: US-PURDUE-USA-2016-0134076

PATIENT
  Sex: Male

DRUGS (3)
  1. BUTRANS [Suspect]
     Active Substance: BUPRENORPHINE
     Indication: INTERVERTEBRAL DISC PROTRUSION
     Dosage: 20 MCG/HR, UNK
     Route: 062
     Dates: start: 201609
  2. BUTRANS [Suspect]
     Active Substance: BUPRENORPHINE
     Indication: NERVE COMPRESSION
  3. BUTRANS [Suspect]
     Active Substance: BUPRENORPHINE
     Indication: ARTHRALGIA
     Dosage: 15 MCG/HR, WEEKLY
     Route: 062
     Dates: start: 2016

REACTIONS (6)
  - Pyrexia [Unknown]
  - Feeling abnormal [Unknown]
  - Drug ineffective [Unknown]
  - Influenza [Unknown]
  - Drug effect decreased [Unknown]
  - Drug effect increased [Unknown]

NARRATIVE: CASE EVENT DATE: 2016
